FAERS Safety Report 5455591-9 (Version None)
Quarter: 2007Q3

REPORT INFORMATION
  Report Type: 
  Country: None (occurrence: None)
  Receive Date: 20070914
  Receipt Date: 20070830
  Transmission Date: 20080115
  Serious: Yes (Other)
  Sender: FDA-Public Use
  Company Number: 8026450

PATIENT
  Age: 3 Year
  Sex: Male

DRUGS (6)
  1. KEPPRA [Suspect]
     Indication: CONVULSION
     Dosage: 150 MG PO
     Route: 048
     Dates: start: 20070301
  2. KEPPRA [Suspect]
     Indication: CONVULSION
     Dosage: ONCE IV
     Route: 042
     Dates: start: 20070101, end: 20070101
  3. CARBOPLATIN [Concomitant]
  4. PENTAMIDINE ISETHIONATE [Concomitant]
  5. ZOFRAN [Concomitant]
  6. MAGNESIUM SULFATE [Concomitant]

REACTIONS (2)
  - DRUG ADMINISTRATION ERROR [None]
  - INCORRECT ROUTE OF DRUG ADMINISTRATION [None]
